FAERS Safety Report 14943878 (Version 4)
Quarter: 2018Q2

REPORT INFORMATION
  Report Type: Spontaneous
  Country: US (occurrence: US)
  Receive Date: 20180528
  Receipt Date: 20180613
  Transmission Date: 20180711
  Serious: Yes (Other)
  Sender: FDA-Public Use
  Company Number: US-TEVA-2018-US-896061

PATIENT
  Age: 2 Year
  Sex: Female
  Weight: 31 kg

DRUGS (2)
  1. ALBUTEROL INHALER [Suspect]
     Active Substance: ALBUTEROL
     Route: 065
  2. QVAR REDIHALER [Suspect]
     Active Substance: BECLOMETHASONE DIPROPIONATE
     Indication: ASTHMA
     Dosage: 2 PUFFS TWICE DAILY AS NEEDED
     Route: 065
     Dates: start: 201805

REACTIONS (3)
  - Device issue [Unknown]
  - Drug administered to patient of inappropriate age [Unknown]
  - Asthma [Unknown]

NARRATIVE: CASE EVENT DATE: 20180517
